FAERS Safety Report 23315957 (Version 1)
Quarter: 2023Q4

REPORT INFORMATION
  Report Type: Spontaneous
  Country: HU (occurrence: None)
  Receive Date: 20231219
  Receipt Date: 20231219
  Transmission Date: 20240109
  Serious: Yes (Other)
  Sender: FDA-Public Use
  Company Number: 2023A282852

PATIENT
  Age: 17 Year
  Sex: Female

DRUGS (1)
  1. ROSUVASTATIN [Suspect]
     Active Substance: ROSUVASTATIN
     Route: 048

REACTIONS (12)
  - Gene mutation [Unknown]
  - Hepato-lenticular degeneration [Unknown]
  - Epstein-Barr virus infection [Unknown]
  - Hepatic function abnormal [Unknown]
  - Hepatic lesion [Unknown]
  - Ceruloplasmin decreased [Unknown]
  - Proteinuria [Unknown]
  - Hyperlipidaemia [Unknown]
  - Gamma-glutamyltransferase increased [Unknown]
  - Hypothyroidism [Unknown]
  - Nephropathy [Unknown]
  - Nephrotic syndrome [Unknown]
